FAERS Safety Report 19682215 (Version 2)
Quarter: 2021Q3

REPORT INFORMATION
  Report Type: Spontaneous
  Country: NL (occurrence: NL)
  Receive Date: 20210811
  Receipt Date: 20210827
  Transmission Date: 20211014
  Serious: Yes (Hospitalization)
  Sender: FDA-Public Use
  Company Number: NL-UNICHEM PHARMACEUTICALS (USA) INC-UCM202108-000738

PATIENT
  Age: 18 Year
  Sex: Female
  Weight: 50 kg

DRUGS (2)
  1. CLOMIPRAMINE [Suspect]
     Active Substance: CLOMIPRAMINE
     Indication: OVERDOSE
     Dosage: 50 TABLETS OF 75 MG (3.75 G TOTAL)
  2. QUETIAPINE. [Suspect]
     Active Substance: QUETIAPINE
     Indication: OVERDOSE
     Dosage: 100 TABLETS OF 25 MG (2.5 G TOTAL)

REACTIONS (9)
  - Coma scale abnormal [Recovered/Resolved]
  - Hypotonia [Recovered/Resolved]
  - Agitation [Recovered/Resolved]
  - Poisoning [Recovered/Resolved]
  - Anxiety [Recovered/Resolved]
  - Bezoar [Recovered/Resolved]
  - Depressed level of consciousness [Recovered/Resolved]
  - Overdose [Unknown]
  - Tachycardia [Recovered/Resolved]
